FAERS Safety Report 7633963-1 (Version None)
Quarter: 2011Q3

REPORT INFORMATION
  Report Type: 
  Country: None (occurrence: None)
  Receive Date: 20110725
  Receipt Date: 20110713
  Transmission Date: 20111222
  Serious: Yes (Other)
  Sender: FDA-Public Use
  Company Number: FR-JNJFOC-2010012827

PATIENT
  Age: 55 Year

DRUGS (2)
  1. CETIRIZINE HCL [Suspect]
     Indication: PRODUCT USED FOR UNKNOWN INDICATION
     Dosage: DAILY DOSE TEXT: TAKING 3 TIMES THE PRESCRIBED DOSE
     Route: 065
  2. CETIRIZINE HCL [Suspect]
     Route: 065

REACTIONS (1)
  - VENTRICULAR ARRHYTHMIA [None]
